FAERS Safety Report 4934829-8 (Version None)
Quarter: 2006Q1

REPORT INFORMATION
  Report Type: 
  Country: None (occurrence: None)
  Receive Date: 20060307
  Receipt Date: 20050427
  Transmission Date: 20060701
  Serious: Yes (Death)
  Sender: FDA-Public Use
  Company Number: CA-MERCK-0504CAN00174

PATIENT
  Age: 64 Year
  Sex: Male

DRUGS (14)
  1. ZETIA [Suspect]
     Route: 048
     Dates: start: 20040429
  2. DESLORATADINE [Suspect]
     Indication: HYPERSENSITIVITY
     Route: 048
     Dates: start: 20031119
  3. DESLORATADINE [Suspect]
     Indication: RHINITIS
     Route: 048
     Dates: start: 20031119
  4. MOMETASONE FUROATE [Suspect]
     Route: 065
     Dates: start: 20011221
  5. ROSUVASTATIN CALCIUM [Suspect]
     Route: 065
  6. TIOTROPIUM BROMIDE [Concomitant]
     Route: 065
  7. LORAZEPAM [Concomitant]
     Route: 065
  8. ASPIRIN [Concomitant]
     Route: 065
  9. AMLODIPINE BESYLATE [Concomitant]
     Route: 065
  10. VENLAFAXINE HYDROCHLORIDE [Concomitant]
     Route: 065
  11. VASOTEC RPD [Concomitant]
     Route: 048
  12. BUPROPION HYDROCHLORIDE [Concomitant]
     Route: 065
  13. LANSOPRAZOLE [Concomitant]
     Route: 065
  14. CYANOCOBALAMIN [Concomitant]
     Route: 030

REACTIONS (1)
  - MYOCARDIAL INFARCTION [None]
